FAERS Safety Report 22093731 (Version 1)
Quarter: 2023Q1

REPORT INFORMATION
  Report Type: Spontaneous
  Country: CN (occurrence: CN)
  Receive Date: 20230314
  Receipt Date: 20230314
  Transmission Date: 20230417
  Serious: Yes (Hospitalization, Other)
  Sender: FDA-Public Use
  Company Number: CN-MYLANLABS-2023M1026339

PATIENT
  Age: 39 Year
  Sex: Male
  Weight: 74 kg

DRUGS (4)
  1. CELECOXIB [Suspect]
     Active Substance: CELECOXIB
     Indication: Product used for unknown indication
     Dosage: 400 MILLIGRAM, QD
     Route: 048
     Dates: start: 20230126
  2. CELECOXIB [Suspect]
     Active Substance: CELECOXIB
     Dosage: 200 MILLIGRAM, BID
     Route: 048
     Dates: start: 20230129
  3. LORBRENA [Suspect]
     Active Substance: LORLATINIB
     Indication: Lung adenocarcinoma
     Dosage: 100 MILLIGRAM, QD
     Route: 048
     Dates: start: 20230105, end: 20230129
  4. LORBRENA [Suspect]
     Active Substance: LORLATINIB
     Indication: Targeted cancer therapy

REACTIONS (4)
  - Delirium [Recovering/Resolving]
  - Pyrexia [Unknown]
  - Somnolence [Unknown]
  - Drug ineffective [Unknown]
